FAERS Safety Report 24281427 (Version 1)
Quarter: 2024Q3

REPORT INFORMATION
  Report Type: Spontaneous
  Country: ES (occurrence: ES)
  Receive Date: 20240904
  Receipt Date: 20240904
  Transmission Date: 20241016
  Serious: Yes (Other)
  Sender: PFIZER
  Company Number: ES-PFIZER INC-PV202400114759

PATIENT
  Age: 8 Month
  Sex: Female

DRUGS (1)
  1. SIROLIMUS [Suspect]
     Active Substance: SIROLIMUS
     Indication: Thrombocytopenia
     Dosage: 1 MG, DAILY

REACTIONS (4)
  - Dyslipidaemia [Unknown]
  - Off label use [Unknown]
  - Off label use [Unknown]
  - Drug effective for unapproved indication [Unknown]
